FAERS Safety Report 9649403 (Version 1)
Quarter: 2013Q4

REPORT INFORMATION
  Report Type: Spontaneous
  Country: US (occurrence: US)
  Receive Date: 20131028
  Receipt Date: 20131028
  Transmission Date: 20140711
  Serious: No
  Sender: FDA-Public Use
  Company Number: US-BAYER-2013-131210

PATIENT
  Age: 81 Year
  Sex: Male
  Weight: 102.4 kg

DRUGS (2)
  1. ALEVE CAPLET [Suspect]
     Indication: ARTHRITIS
     Dosage: 2 DF, BID
     Route: 048
     Dates: start: 2012
  2. ALEVE CAPLET [Suspect]
     Indication: INFLAMMATION

REACTIONS (3)
  - Extra dose administered [None]
  - Off label use [None]
  - Incorrect drug administration duration [None]
